FAERS Safety Report 8295129-4 (Version None)
Quarter: 2012Q2

REPORT INFORMATION
  Report Type: 
  Country: None (occurrence: None)
  Receive Date: 20120418
  Receipt Date: 20120410
  Transmission Date: 20120825
  Serious: Yes (Hospitalization)
  Sender: FDA-Public Use
  Company Number: NL-ROCHE-1058609

PATIENT
  Sex: Female

DRUGS (3)
  1. BONIVA [Suspect]
     Indication: OSTEOPOROSIS
     Route: 048
  2. IRBESARTAN [Concomitant]
     Indication: HYPERTENSION
  3. HYDREA [Concomitant]
     Indication: BLOOD DISORDER

REACTIONS (2)
  - ARRHYTHMIA [None]
  - DIZZINESS [None]
